APPROVED DRUG PRODUCT: ADENOSINE
Active Ingredient: ADENOSINE
Strength: 60MG/20ML (3MG/ML)
Dosage Form/Route: SOLUTION;INTRAVENOUS
Application: A203883 | Product #001
Applicant: HOSPIRA INC
Approved: Mar 24, 2014 | RLD: No | RS: No | Type: DISCN